FAERS Safety Report 7307815-0 (Version None)
Quarter: 2011Q1

REPORT INFORMATION
  Report Type: 
  Country: None (occurrence: None)
  Receive Date: 20110223
  Receipt Date: 20110215
  Transmission Date: 20110831
  Serious: Yes (Hospitalization)
  Sender: FDA-Public Use
  Company Number: FR-KINGPHARMUSA00001-K201100165

PATIENT
  Age: 54 Year
  Sex: Male

DRUGS (12)
  1. VICTOZA [Suspect]
     Dosage: 1.2 MG, QD
     Route: 058
     Dates: start: 20100515, end: 20110117
  2. GLUCOPHAGE [Suspect]
     Indication: TYPE 2 DIABETES MELLITUS
     Dosage: 1000 MG, TID
     Route: 048
  3. TRIMETAZIDINE HYDROCHLORIDE [Suspect]
     Indication: HYPERTENSION
     Dosage: 35 MG, BID
     Route: 048
  4. TOPALGIC LP [Suspect]
     Indication: PAIN
     Dosage: 10 MG, BID
     Route: 048
  5. TAHOR [Concomitant]
     Dosage: 40 MG, BID
  6. ASPIRIN [Concomitant]
     Dosage: 160 MG, QD
  7. IKOREL [Concomitant]
     Dosage: 20 MG, BID
  8. PIOGLITAZONE [Suspect]
     Indication: TYPE 2 DIABETES MELLITUS
     Dosage: 15 MG, QD
     Route: 048
  9. AMLOR [Suspect]
     Indication: HYPERTENSION
     Dosage: 5 MG, BID
     Route: 048
  10. ALTACE [Suspect]
     Indication: HYPERTENSION
     Dosage: 10 MG, QD
     Route: 048
  11. VICTOZA [Suspect]
     Indication: TYPE 2 DIABETES MELLITUS
     Dosage: 1.8 MG, QD
     Route: 058
     Dates: start: 20110118
  12. CARDENSIEL [Suspect]
     Indication: HYPERTENSION
     Dosage: 20 MG, QD
     Route: 048

REACTIONS (6)
  - FALL [None]
  - SUPRAVENTRICULAR TACHYCARDIA [None]
  - MALAISE [None]
  - ASTHENIA [None]
  - VISUAL IMPAIRMENT [None]
  - HYPOTONIA [None]
